FAERS Safety Report 21701857 (Version 2)
Quarter: 2022Q4

REPORT INFORMATION
  Report Type: Spontaneous
  Country: GB (occurrence: GB)
  Receive Date: 20221208
  Receipt Date: 20221228
  Transmission Date: 20230113
  Serious: Yes (Hospitalization)
  Sender: FDA-Public Use
  Company Number: GB-MYLANLABS-2022M1136432

PATIENT
  Age: 25 Year
  Sex: Female

DRUGS (4)
  1. CLOZARIL [Suspect]
     Active Substance: CLOZAPINE
     Indication: Product used for unknown indication
     Dosage: UNK
     Route: 048
     Dates: start: 20190508
  2. CLOZARIL [Suspect]
     Active Substance: CLOZAPINE
     Dosage: 12.5 MILLIGRAM
     Route: 065
     Dates: start: 20221204
  3. CLOZARIL [Suspect]
     Active Substance: CLOZAPINE
     Dosage: 75 MILLIGRAM (AT LUNCH TIME)
     Route: 065
  4. CLOZARIL [Suspect]
     Active Substance: CLOZAPINE
     Dosage: 100 MILLIGRAM, HS (NOCTE)
     Route: 065
     Dates: end: 202211

REACTIONS (2)
  - Overdose [Unknown]
  - Full blood count abnormal [Unknown]

NARRATIVE: CASE EVENT DATE: 20221201
